FAERS Safety Report 5627324-4 (Version None)
Quarter: 2008Q1

REPORT INFORMATION
  Report Type: 
  Country: None (occurrence: None)
  Receive Date: 20080215
  Receipt Date: 20080207
  Transmission Date: 20080703
  Serious: Yes (Life-Threatening, Hospitalization, Other)
  Sender: FDA-Public Use
  Company Number: US-JNJFOC-20071201206

PATIENT
  Sex: Female
  Weight: 83.92 kg

DRUGS (4)
  1. SPORANOX [Suspect]
     Indication: ONYCHOMYCOSIS
     Route: 048
  2. COZAAR [Concomitant]
     Indication: HYPERTENSION
     Route: 048
  3. HTCZ [Concomitant]
     Indication: HYPERTENSION
     Route: 048
  4. EFFEXOR [Concomitant]
     Indication: POST-TRAUMATIC STRESS DISORDER
     Route: 048

REACTIONS (9)
  - ABDOMINAL WALL ABSCESS [None]
  - ABSCESS LIMB [None]
  - ANDROGENETIC ALOPECIA [None]
  - BLOOD PRESSURE ABNORMAL [None]
  - INCISION SITE ABSCESS [None]
  - LOSS OF CONSCIOUSNESS [None]
  - NAIL DISORDER [None]
  - PARANOIA [None]
  - STEVENS-JOHNSON SYNDROME [None]
